FAERS Safety Report 12417733 (Version 2)
Quarter: 2016Q2

REPORT INFORMATION
  Report Type: Report from Study
  Country: HN (occurrence: HN)
  Receive Date: 20160530
  Receipt Date: 20160620
  Transmission Date: 20160815
  Serious: Yes (Death, Other)
  Sender: FDA-Public Use
  Company Number: PHHY2016HN073189

PATIENT
  Age: 42 Year
  Sex: Female
  Weight: 41.8 kg

DRUGS (1)
  1. GLIVEC [Suspect]
     Active Substance: IMATINIB MESYLATE
     Indication: GASTROINTESTINAL STROMAL TUMOUR
     Dosage: 400 MG, UNK
     Route: 065

REACTIONS (8)
  - Thyroid mass [Unknown]
  - Metastasis [Unknown]
  - Metastases to spine [Unknown]
  - Metastases to liver [Unknown]
  - Cyst [Unknown]
  - Renal cyst [Unknown]
  - Death [Fatal]
  - Metastases to pelvis [Unknown]

NARRATIVE: CASE EVENT DATE: 20150727
